FAERS Safety Report 4529697-2 (Version None)
Quarter: 2004Q4

REPORT INFORMATION
  Report Type: 
  Country: None (occurrence: None)
  Receive Date: 20041214
  Receipt Date: 20041201
  Transmission Date: 20050328
  Serious: Yes (Hospitalization)
  Sender: FDA-Public Use
  Company Number: 210932

PATIENT
  Age: 64 Year
  Sex: Male

DRUGS (3)
  1. BEVACIZUMAB(BEVACIZUMAB) PWDR + SOLVENT,INFUSION SOLN, 100MG [Suspect]
     Indication: NON-SMALL CELL LUNG CANCER
     Dosage: 15 MG/KG, Q3W, INTRAVENOUS
     Route: 042
     Dates: start: 20040218
  2. CARBOPLATIN [Suspect]
     Indication: NON-SMALL CELL LUNG CANCER
     Dosage: 6 AUC, Q3W, INTRAVENOUS
     Route: 042
     Dates: start: 20040218
  3. PACLITAXEL [Suspect]
     Indication: NON-SMALL CELL LUNG CANCER
     Dosage: 200 MG/M2, Q3W, INTRAVENOUS
     Route: 042
     Dates: start: 20040218

REACTIONS (11)
  - ANOREXIA [None]
  - CLOSTRIDIUM COLITIS [None]
  - CONFUSIONAL STATE [None]
  - DEHYDRATION [None]
  - DEPRESSED LEVEL OF CONSCIOUSNESS [None]
  - INFECTION [None]
  - LETHARGY [None]
  - MARKEDLY REDUCED DIETARY INTAKE [None]
  - MENTAL STATUS CHANGES [None]
  - PNEUMONIA [None]
  - SOMNOLENCE [None]
